FAERS Safety Report 15781520 (Version 6)
Quarter: 2019Q3

REPORT INFORMATION
  Report Type: Report from Study
  Country: IN (occurrence: IN)
  Receive Date: 20190102
  Receipt Date: 20190930
  Transmission Date: 20191004
  Serious: Yes (Hospitalization)
  Sender: FDA-Public Use
  Company Number: PHHY2018IN198193

PATIENT
  Age: 29 Year
  Sex: Male

DRUGS (9)
  1. SCAPHO [Suspect]
     Active Substance: SECUKINUMAB
     Indication: PSORIASIS
     Dosage: 300 MG, QMO
     Route: 058
  2. SCAPHO [Suspect]
     Active Substance: SECUKINUMAB
     Dosage: 300 MG, QMO
     Route: 058
     Dates: start: 20190114
  3. SCAPHO [Suspect]
     Active Substance: SECUKINUMAB
     Dosage: 300 MG, QMO (VIAL)
     Route: 058
     Dates: start: 20190606
  4. SCAPHO [Suspect]
     Active Substance: SECUKINUMAB
     Dosage: 300 MG, UNK
     Route: 058
     Dates: start: 20181016
  5. PSORID [Suspect]
     Active Substance: CYCLOSPORINE
     Indication: PRODUCT USED FOR UNKNOWN INDICATION
     Route: 065
  6. SCAPHO [Suspect]
     Active Substance: SECUKINUMAB
     Dosage: 300 MG, UNK
     Route: 058
     Dates: start: 20181010
  7. SCAPHO [Suspect]
     Active Substance: SECUKINUMAB
     Dosage: 300 MG, UNK
     Route: 058
     Dates: start: 20190924
  8. SCAPHO [Suspect]
     Active Substance: SECUKINUMAB
     Dosage: 300 MG, QMO
     Route: 058
     Dates: start: 20181124
  9. SCAPHO [Suspect]
     Active Substance: SECUKINUMAB
     Dosage: 300 MG, UNK
     Route: 058
     Dates: start: 20181023

REACTIONS (12)
  - Psoriasis [Unknown]
  - Pruritus [Unknown]
  - Feeling hot [Unknown]
  - Skin lesion [Unknown]
  - Abdominal pain lower [Recovered/Resolved]
  - Abdominal pain lower [Not Recovered/Not Resolved]
  - Erythema [Recovered/Resolved]
  - Macule [Not Recovered/Not Resolved]
  - Erythema [Unknown]
  - Skin exfoliation [Recovered/Resolved]
  - Drug ineffective [Unknown]
  - Nephrolithiasis [Unknown]

NARRATIVE: CASE EVENT DATE: 20181228
